FAERS Safety Report 4639286-7 (Version None)
Quarter: 2005Q2

REPORT INFORMATION
  Report Type: 
  Country: None (occurrence: None)
  Receive Date: 20050418
  Receipt Date: 20050405
  Transmission Date: 20051028
  Serious: Yes (Disabling, Other)
  Sender: FDA-Public Use
  Company Number: 2005052829

PATIENT
  Age: 83 Year
  Sex: Male
  Weight: 81.6475 kg

DRUGS (8)
  1. DETROL LA [Suspect]
     Indication: MICTURITION DISORDER
     Dates: start: 20030101
  2. DETROL LA [Suspect]
     Indication: MICTURITION DISORDER
     Dosage: (4 MG)
  3. ASPIRIN [Suspect]
     Indication: JOINT INJURY
     Dosage: 4 GRAM (1 D), ORAL
     Route: 048
  4. TAMSULOSIN HCL [Concomitant]
  5. CARVEDILOL [Concomitant]
  6. GLUCOSAMINE (GLUCOSAMINE) [Concomitant]
  7. ASCORBIC ACID [Concomitant]
  8. TOCOPHEROL (TOCOPHEROL) [Concomitant]

REACTIONS (4)
  - DIFFICULTY IN WALKING [None]
  - DRUG INEFFECTIVE [None]
  - NOCTURIA [None]
  - POST PROCEDURAL COMPLICATION [None]
